FAERS Safety Report 6967377-4 (Version None)
Quarter: 2010Q3

REPORT INFORMATION
  Report Type: 
  Country: None (occurrence: None)
  Receive Date: 20100823
  Receipt Date: 20100503
  Transmission Date: 20110219
  Serious: No
  Sender: FDA-Public Use
  Company Number: 011280

PATIENT
  Sex: Female

DRUGS (3)
  1. CIMZIA [Suspect]
     Indication: CROHN'S DISEASE
     Dosage: (200 MG, 1 INJECTION EVERY OTHE WEEK SUBCUTANEOUS)
     Route: 058
     Dates: start: 20090901
  2. PREDNISONE [Concomitant]
  3. IMURAN [Concomitant]

REACTIONS (3)
  - ABDOMINAL PAIN [None]
  - DIARRHOEA [None]
  - ERYTHEMA NODOSUM [None]
